FAERS Safety Report 24566425 (Version 1)
Quarter: 2024Q4

REPORT INFORMATION
  Report Type: Spontaneous
  Country: MA (occurrence: MA)
  Receive Date: 20241030
  Receipt Date: 20241030
  Transmission Date: 20250114
  Serious: Yes (Other)
  Sender: BOEHRINGER INGELHEIM
  Company Number: MA-BoehringerIngelheim-2024-BI-060028

PATIENT
  Age: 65 Year
  Sex: Male

DRUGS (1)
  1. JARDIANCE [Suspect]
     Active Substance: EMPAGLIFLOZIN
     Indication: Diabetes mellitus

REACTIONS (1)
  - Ischaemic stroke [Recovering/Resolving]
